FAERS Safety Report 7989315-8 (Version None)
Quarter: 2011Q4

REPORT INFORMATION
  Report Type: 
  Country: None (occurrence: None)
  Receive Date: 20111219
  Receipt Date: 20111214
  Transmission Date: 20120403
  Serious: Yes (Death)
  Sender: FDA-Public Use
  Company Number: US-AMGEN-USASP2011066041

PATIENT
  Age: 42 Year
  Sex: Male
  Weight: 83.81 kg

DRUGS (2)
  1. NEULASTA [Suspect]
     Indication: CHEMOTHERAPY
     Dosage: 6 MG, Q3WK
     Route: 058
     Dates: start: 20110114, end: 20110901
  2. ANTINEOPLASTIC AGENTS [Concomitant]
     Indication: LYMPHOMA

REACTIONS (1)
  - LYMPHOMA [None]
